FAERS Safety Report 20291475 (Version 2)
Quarter: 2022Q1

REPORT INFORMATION
  Report Type: Spontaneous
  Country: US (occurrence: US)
  Receive Date: 20220104
  Receipt Date: 20220128
  Transmission Date: 20220423
  Serious: No
  Sender: FDA-Public Use
  Company Number: US-Organon-US20211202008

PATIENT
  Age: 26 Year
  Sex: Female
  Weight: 73.923 kg

DRUGS (1)
  1. NEXPLANON [Suspect]
     Active Substance: ETONOGESTREL
     Dosage: 1 IMPLANT FOR EVERY 3 YEARS ON LEFT UPPER ARM
     Route: 059
     Dates: start: 201906

REACTIONS (5)
  - Complication of device removal [Not Recovered/Not Resolved]
  - Implant site fibrosis [Unknown]
  - Menstruation irregular [Unknown]
  - Vaginal haemorrhage [Unknown]
  - Complication associated with device [Not Recovered/Not Resolved]

NARRATIVE: CASE EVENT DATE: 20211222
